FAERS Safety Report 5337672-3 (Version None)
Quarter: 2007Q2

REPORT INFORMATION
  Report Type: 
  Country: None (occurrence: None)
  Receive Date: 20070315
  Receipt Date: 20060223
  Transmission Date: 20071010
  Serious: Yes (Other)
  Sender: FDA-Public Use
  Company Number: PHEH2006US02580

PATIENT
  Age: 44 Year
  Sex: Female

DRUGS (3)
  1. TRILEPTAL [Suspect]
     Indication: BIPOLAR DISORDER
     Dates: start: 20050101
  2. TRAZODONE HCL [Concomitant]
  3. LEXAPRO [Concomitant]

REACTIONS (1)
  - THYROXINE DECREASED [None]
